FAERS Safety Report 12722983 (Version 1)
Quarter: 2016Q3

REPORT INFORMATION
  Report Type: Spontaneous
  Country: CA (occurrence: CA)
  Receive Date: 20160908
  Receipt Date: 20160908
  Transmission Date: 20161109
  Serious: Yes (Other)
  Sender: FDA-Public Use
  Company Number: CA-ROCHE-1826473

PATIENT
  Sex: Male

DRUGS (3)
  1. RITUXAN [Suspect]
     Active Substance: RITUXIMAB
     Indication: RHEUMATOID ARTHRITIS
     Route: 042
  2. REMICADE [Suspect]
     Active Substance: INFLIXIMAB
     Indication: RHEUMATOID ARTHRITIS
     Route: 042
  3. ORENCIA [Suspect]
     Active Substance: ABATACEPT
     Indication: RHEUMATOID ARTHRITIS
     Route: 065

REACTIONS (9)
  - Musculoskeletal stiffness [Recovered/Resolved]
  - Arthropathy [Recovered/Resolved]
  - Nephrolithiasis [Recovered/Resolved]
  - Prostate cancer [Recovered/Resolved]
  - Drug effect decreased [Unknown]
  - Dysphonia [Recovered/Resolved]
  - Drug dose omission [Unknown]
  - Gastrooesophageal reflux disease [Recovered/Resolved]
  - Musculoskeletal pain [Recovered/Resolved]
